FAERS Safety Report 4816220-8 (Version None)
Quarter: 2005Q4

REPORT INFORMATION
  Report Type: 
  Country: None (occurrence: None)
  Receive Date: 20051026
  Receipt Date: 20051024
  Transmission Date: 20060501
  Serious: Yes (Hospitalization, Disabling)
  Sender: FDA-Public Use
  Company Number: THQ2005A00479

PATIENT
  Age: 73 Year
  Sex: 0

DRUGS (8)
  1. LEUPROLIDE ACETATE [Suspect]
     Dosage: 22.5 MG (22.5 MG, 1 IN 3 M) INTRAMUSCULAR
     Route: 030
     Dates: start: 20031202, end: 20040224
  2. COLOXYL WITH SENNA [Concomitant]
  3. SIMVASTATIN [Concomitant]
  4. METFORMIN HCL [Concomitant]
  5. GLICLAZIDE [Concomitant]
  6. RAMIPRIL [Concomitant]
  7. UNK [Concomitant]
  8. ASPIRIN/DIPYRIDAMOLE (ASASANTIN /00580301/) [Concomitant]

REACTIONS (9)
  - AORTIC ARTERIOSCLEROSIS [None]
  - BACK PAIN [None]
  - DIASTOLIC DYSFUNCTION [None]
  - DILATATION ATRIAL [None]
  - DYSPNOEA EXACERBATED [None]
  - GLYCOSYLATED HAEMOGLOBIN INCREASED [None]
  - MITRAL VALVE STENOSIS [None]
  - SPINAL OSTEOARTHRITIS [None]
  - VENTRICULAR HYPERTROPHY [None]
